FAERS Safety Report 8840612 (Version 6)
Quarter: 2013Q3

REPORT INFORMATION
  Report Type: Spontaneous
  Country: US (occurrence: US)
  Receive Date: 20121015
  Receipt Date: 20130828
  Transmission Date: 20140515
  Serious: Yes (Hospitalization, Disabling, Other)
  Sender: FDA-Public Use
  Company Number: US-009507513-1210USA003144

PATIENT
  Sex: Female
  Weight: 95.24 kg

DRUGS (4)
  1. FOSAMAX [Suspect]
     Indication: OSTEOPOROSIS
     Dosage: 10 MG, QD
     Route: 048
     Dates: start: 2000, end: 201202
  2. FOSAMAX [Suspect]
     Dosage: 70 MG, QW
     Route: 048
     Dates: start: 2000, end: 201202
  3. ALENDRONATE SODIUM [Suspect]
     Indication: OSTEOPOROSIS
     Dosage: 70 MG, QW
     Dates: start: 2000, end: 2012
  4. CALCIUM (UNSPECIFIED) (+) VITAMIN D (UNSPECIFIED) [Concomitant]
     Dosage: 500MG + 200IU, BID
     Dates: start: 2000

REACTIONS (25)
  - Femur fracture [Not Recovered/Not Resolved]
  - Low turnover osteopathy [Not Recovered/Not Resolved]
  - Osteoporosis [Not Recovered/Not Resolved]
  - Intramedullary rod insertion [Unknown]
  - Spinal decompression [Unknown]
  - Spinal fusion surgery [Unknown]
  - Surgery [Unknown]
  - Renal impairment [Unknown]
  - Spinal disorder [Unknown]
  - Thoracic vertebral fracture [Unknown]
  - Hormone replacement therapy [Unknown]
  - Scoliosis [Unknown]
  - Osteoarthritis [Unknown]
  - Osteoarthritis [Unknown]
  - Osteopenia [Unknown]
  - Arthritis [Unknown]
  - Lumbar spinal stenosis [Unknown]
  - Pseudarthrosis [Unknown]
  - Anaemia postoperative [Unknown]
  - Diabetes mellitus [Unknown]
  - Hypertension [Unknown]
  - Blood cholesterol increased [Unknown]
  - White blood cell count increased [Unknown]
  - Accident [Unknown]
  - Oedema peripheral [Unknown]
